FAERS Safety Report 5843018-4 (Version None)
Quarter: 2008Q3

REPORT INFORMATION
  Report Type: 
  Country: None (occurrence: None)
  Receive Date: 20080811
  Receipt Date: 20080728
  Transmission Date: 20090109
  Serious: Yes (Other)
  Sender: FDA-Public Use
  Company Number: TRP_05838_2008

PATIENT
  Sex: Female

DRUGS (6)
  1. RIBAVIRIN [Suspect]
     Indication: HEPATITIS C
     Dosage: 1200 MG ORAL
     Route: 048
     Dates: start: 20070205
  2. PEGINTERFERON ALFA-2A [Suspect]
     Indication: HEPATITIS C
     Dosage: 180 MCG SUBCUTANEOUS
     Route: 058
     Dates: start: 20070205
  3. NEUPOGEN [Suspect]
     Indication: DRUG USE FOR UNKNOWN INDICATION
     Dosage: 2 X PER WEEK, 1 X PER WEEK [WITHHELD FOR 1 WEEK], 2 X PER WEEK, 3 X PER WEEK
     Dates: start: 20070101, end: 20070101
  4. NEUPOGEN [Suspect]
     Indication: DRUG USE FOR UNKNOWN INDICATION
     Dosage: 2 X PER WEEK, 1 X PER WEEK [WITHHELD FOR 1 WEEK], 2 X PER WEEK, 3 X PER WEEK
     Dates: start: 20070101, end: 20070101
  5. NEUPOGEN [Suspect]
     Indication: DRUG USE FOR UNKNOWN INDICATION
     Dosage: 2 X PER WEEK, 1 X PER WEEK [WITHHELD FOR 1 WEEK], 2 X PER WEEK, 3 X PER WEEK
     Dates: end: 20070101
  6. NEUPOGEN [Suspect]
     Indication: DRUG USE FOR UNKNOWN INDICATION
     Dosage: 2 X PER WEEK, 1 X PER WEEK [WITHHELD FOR 1 WEEK], 2 X PER WEEK, 3 X PER WEEK
     Dates: start: 20070101

REACTIONS (24)
  - ALOPECIA [None]
  - ANAEMIA [None]
  - ANOREXIA [None]
  - ASTHENIA [None]
  - CHEST PAIN [None]
  - CONSTIPATION [None]
  - DEPRESSION [None]
  - DIZZINESS [None]
  - ECZEMA [None]
  - FATIGUE [None]
  - FEELING ABNORMAL [None]
  - HEADACHE [None]
  - HYPOAESTHESIA [None]
  - INJECTION SITE HAEMATOMA [None]
  - INJECTION SITE RASH [None]
  - INSOMNIA [None]
  - MEMORY IMPAIRMENT [None]
  - MUSCLE SPASMS [None]
  - MUSCULOSKELETAL PAIN [None]
  - OROPHARYNGEAL BLISTERING [None]
  - SKIN FISSURES [None]
  - SKIN INFLAMMATION [None]
  - WEIGHT DECREASED [None]
  - WHITE BLOOD CELL COUNT DECREASED [None]
